FAERS Safety Report 10380825 (Version 1)
Quarter: 2014Q3

REPORT INFORMATION
  Report Type: Spontaneous
  Country: US (occurrence: US)
  Receive Date: 20140813
  Receipt Date: 20140813
  Transmission Date: 20150326
  Serious: Yes (Other)
  Sender: FDA-Public Use
  Company Number: US-NOVOPROD-418421

PATIENT
  Age: 51 Year
  Sex: Female
  Weight: 57.6 kg

DRUGS (4)
  1. VICTOZA [Suspect]
     Active Substance: LIRAGLUTIDE
     Dosage: 1.8 MG, QD
     Route: 058
     Dates: start: 2013, end: 2013
  2. VICTOZA [Suspect]
     Active Substance: LIRAGLUTIDE
     Indication: BLOOD GLUCOSE INCREASED
     Dosage: 1.8 MG, QD
     Route: 058
     Dates: start: 2013, end: 2013
  3. VICTOZA [Suspect]
     Active Substance: LIRAGLUTIDE
     Indication: WEIGHT DECREASED
     Dosage: 1.2 MG, QD
     Route: 058
     Dates: start: 2013, end: 2013
  4. VICTOZA [Suspect]
     Active Substance: LIRAGLUTIDE
     Dosage: 1.2 MG, QD
     Route: 058
     Dates: start: 2013

REACTIONS (3)
  - Pleurisy [Not Recovered/Not Resolved]
  - Off label use [Unknown]
  - Systemic lupus erythematosus [Not Recovered/Not Resolved]

NARRATIVE: CASE EVENT DATE: 2013
